FAERS Safety Report 5861091-4 (Version None)
Quarter: 2008Q3

REPORT INFORMATION
  Report Type: 
  Country: None (occurrence: None)
  Receive Date: 20080827
  Receipt Date: 20080214
  Transmission Date: 20090109
  Serious: No
  Sender: FDA-Public Use
  Company Number: US-ABBOTT-08P-163-0438423-00

PATIENT
  Sex: Male
  Weight: 72.186 kg

DRUGS (2)
  1. NIASPAN [Suspect]
     Indication: HIGH DENSITY LIPOPROTEIN DECREASED
     Route: 048
     Dates: start: 20080108, end: 20080122
  2. FINASTERIDE [Concomitant]
     Indication: ALOPECIA
     Route: 061

REACTIONS (5)
  - ABDOMINAL PAIN UPPER [None]
  - BRONCHITIS [None]
  - DYSPNOEA [None]
  - HEART RATE INCREASED [None]
  - MUSCLE SPASMS [None]
